FAERS Safety Report 10271849 (Version 2)
Quarter: 2014Q3

REPORT INFORMATION
  Report Type: Report from Study
  Country: US (occurrence: US)
  Receive Date: 20140702
  Receipt Date: 20140702
  Transmission Date: 20150326
  Serious: Yes (Death)
  Sender: FDA-Public Use
  Company Number: PHHY2012US031454

PATIENT
  Sex: Male

DRUGS (8)
  1. LUCENTIS [Suspect]
     Active Substance: RANIBIZUMAB
     Dosage: 0.5 MG, QMO (LEFT EYE)
     Route: 031
     Dates: start: 20120103
  2. PHENYLEPHRINE [Concomitant]
     Active Substance: PHENYLEPHRINE\PHENYLEPHRINE HYDROCHLORIDE
     Dosage: UNK UKN, UNK
  3. LUCENTIS [Suspect]
     Active Substance: RANIBIZUMAB
     Dosage: 0.5 MG, EVERY 8 TO 9 WEEKS
     Route: 031
     Dates: start: 20120908
  4. LUCENTIS [Suspect]
     Active Substance: RANIBIZUMAB
     Indication: DIABETIC RETINAL OEDEMA
     Dosage: 0.5 MG, QMO
     Route: 031
  5. LUCENTIS [Suspect]
     Active Substance: RANIBIZUMAB
     Dosage: 0.5 MG, QMO (LEFT EYE)
     Route: 031
     Dates: start: 20111115
  6. NAPROXEN. [Suspect]
     Active Substance: NAPROXEN
     Dosage: UNK UKN, UNK
  7. TROPICAMIDE. [Concomitant]
     Active Substance: TROPICAMIDE
     Dosage: UNK BOTH EYES
  8. ARTIFICIAL TEARS//HYPROMELLOSE [Concomitant]
     Dosage: UNK UKN, UNK

REACTIONS (5)
  - Diabetic retinal oedema [Unknown]
  - Diabetes mellitus [Fatal]
  - Vitreous detachment [Unknown]
  - Drug hypersensitivity [Unknown]
  - Retinal oedema [Unknown]
